FAERS Safety Report 5602519-4 (Version None)
Quarter: 2008Q1

REPORT INFORMATION
  Report Type: 
  Country: None (occurrence: None)
  Receive Date: 20080125
  Receipt Date: 20080123
  Transmission Date: 20080703
  Serious: Yes (Death)
  Sender: FDA-Public Use
  Company Number: B0498117A

PATIENT
  Age: 39 Year
  Sex: Female

DRUGS (4)
  1. PAXIL [Suspect]
     Indication: DEPRESSION
     Dosage: 10MG PER DAY
     Route: 048
     Dates: start: 20071102, end: 20071120
  2. TRAZODONE HYDROCHLORIDE [Concomitant]
     Indication: DEPRESSION
     Dosage: 25MG PER DAY
     Route: 048
     Dates: start: 20071102, end: 20071120
  3. ETIZOLAM [Concomitant]
     Indication: ANXIETY
     Dosage: .5MG PER DAY
     Route: 048
     Dates: start: 20071102, end: 20071120
  4. GASMOTIN [Concomitant]
     Indication: GASTRITIS
     Dosage: 15MG PER DAY
     Route: 048
     Dates: start: 20071102, end: 20071120

REACTIONS (1)
  - COMPLETED SUICIDE [None]
